FAERS Safety Report 9880957 (Version 2)
Quarter: 2014Q1

REPORT INFORMATION
  Report Type: Spontaneous
  Country: DE (occurrence: DE)
  Receive Date: 20140207
  Receipt Date: 20140327
  Transmission Date: 20141002
  Serious: Yes (Death, Hospitalization, Other)
  Sender: FDA-Public Use
  Company Number: DE-UCBSA-111512

PATIENT
  Age: 77 Year
  Sex: Female
  Weight: 54 kg

DRUGS (6)
  1. KEPPRA [Suspect]
     Indication: GRAND MAL CONVULSION
     Dosage: 500MG; 1.5-0-1.5
     Route: 048
     Dates: start: 201308, end: 20131120
  2. DONEPEZIL [Suspect]
     Indication: DEMENTIA
     Dosage: 5 MG; 0-0-1
     Route: 048
     Dates: start: 201308, end: 20131120
  3. ASS [Concomitant]
     Indication: CORONARY ARTERY DISEASE
     Dosage: 100 MG (1-0-0)
     Route: 048
     Dates: end: 20131206
  4. IRBESARTAN [Concomitant]
     Indication: HYPERTENSION
     Dosage: 2X150 MG (2-0-0)
     Route: 048
     Dates: end: 20131120
  5. MOXONIDINE [Concomitant]
     Indication: HYPERTENSION
     Dosage: 0.2 MG (0-1-0)
     Route: 048
     Dates: end: 201312
  6. SODIUM CHLORIDE [Concomitant]
     Dosage: 2-2-2 (DOSE: TAPER UNDER LABORATORY MONITORING)

REACTIONS (2)
  - Acute hepatic failure [Fatal]
  - Hepatorenal syndrome [Fatal]
